FAERS Safety Report 18086939 (Version 1)
Quarter: 2020Q3

REPORT INFORMATION
  Report Type: Spontaneous
  Country: US (occurrence: US)
  Receive Date: 20200729
  Receipt Date: 20200729
  Transmission Date: 20201103
  Serious: Yes (Hospitalization)
  Sender: FDA-Public Use
  Company Number: US-STRIDES ARCOLAB LIMITED-2020SP008476

PATIENT
  Age: 11 Year
  Sex: Female
  Weight: 30 kg

DRUGS (18)
  1. ONFI [Interacting]
     Active Substance: CLOBAZAM
     Indication: GENERALISED TONIC-CLONIC SEIZURE
     Dosage: 5 MILLIGRAM, BID (0.3 MG/KG/DAY)
     Route: 048
  2. CLONIDINE. [Interacting]
     Active Substance: CLONIDINE
     Indication: PRODUCT USED FOR UNKNOWN INDICATION
     Dosage: 0.2 MILLIGRAM, AT BED TIME
     Route: 048
  3. GLYCOPYRROLATE [GLYCOPYRRONIUM BROMIDE] [Concomitant]
     Active Substance: GLYCOPYRROLATE
     Dosage: 1.5 MG AT NOON
     Route: 048
  4. ONFI [Interacting]
     Active Substance: CLOBAZAM
     Dosage: 7.5 MILLIGRAM, BID (0.5 MG/KG/DAY)
     Route: 048
  5. ONFI [Interacting]
     Active Substance: CLOBAZAM
     Dosage: 10 MILLIGRAM, BID (0.7 MG/KG/DAY)
     Route: 048
  6. LEVETIRACETAM. [Concomitant]
     Active Substance: LEVETIRACETAM
     Indication: GENERALISED TONIC-CLONIC SEIZURE
     Dosage: 1200 MILLIGRAM, BID (80 MG/KG/DAY)
     Route: 048
  7. CLONAZEPAM. [Concomitant]
     Active Substance: CLONAZEPAM
     Indication: GENERALISED TONIC-CLONIC SEIZURE
     Dosage: 0.02 MG/KG/DAY DIVIDED THREE TIMES A DAY
     Route: 048
  8. GLYCOPYRROLATE [GLYCOPYRRONIUM BROMIDE] [Concomitant]
     Active Substance: GLYCOPYRROLATE
     Indication: PRODUCT USED FOR UNKNOWN INDICATION
     Dosage: 1 MILLIGRAM, EVERY MORNING
     Route: 048
  9. ONFI [Interacting]
     Active Substance: CLOBAZAM
     Dosage: 5 MILLIGRAM, BID (0.3 MG/KG/DAY)
     Route: 048
  10. DIPHENHYDRAMINE. [Interacting]
     Active Substance: DIPHENHYDRAMINE
     Indication: PRODUCT USED FOR UNKNOWN INDICATION
     Dosage: UNK
     Route: 048
  11. LORAZEPAM. [Concomitant]
     Active Substance: LORAZEPAM
     Indication: GENERALISED TONIC-CLONIC SEIZURE
     Dosage: 2 MILLIGRAM (0.07 MG/KG)
     Route: 048
  12. LORAZEPAM. [Concomitant]
     Active Substance: LORAZEPAM
     Indication: ANXIETY
     Dosage: 1 MILLIGRAM, AT BED TIME ((0.03 MG/KG/DOSE)
     Route: 065
  13. LORAZEPAM. [Concomitant]
     Active Substance: LORAZEPAM
     Dosage: 2 MILLIGRAM (0.07 MG/KG) (EVERY 4?6 HOURS AS NEEDED FOR ANXIETY)
     Route: 048
  14. GLYCOPYRROLATE [GLYCOPYRRONIUM BROMIDE] [Concomitant]
     Active Substance: GLYCOPYRROLATE
     Dosage: 1 MILLIGRAM, AT BED TIME
     Route: 048
  15. MELATONIN [Interacting]
     Active Substance: MELATONIN
     Indication: PRODUCT USED FOR UNKNOWN INDICATION
     Dosage: 3 MILLIGRAM, AT BED TIME
     Route: 048
  16. LORATADINE. [Suspect]
     Active Substance: LORATADINE
     Indication: PRODUCT USED FOR UNKNOWN INDICATION
     Dosage: 10 MILLIGRAM PER DAY
     Route: 048
  17. VALPROIC ACID. [Suspect]
     Active Substance: VALPROIC ACID
     Indication: GENERALISED TONIC-CLONIC SEIZURE
     Dosage: 20 MG/KG LOAD FOLLOWED BY 200 MG (THREE TIMES A DAY (20 MG/KG/DAY))
     Route: 048
  18. BACLOFEN. [Concomitant]
     Active Substance: BACLOFEN
     Indication: QUADRIPLEGIA
     Dosage: 1051 MCG/DAY BY PUMP
     Route: 065

REACTIONS (2)
  - Drug interaction [Unknown]
  - Hypersomnia [Unknown]
